FAERS Safety Report 24173460 (Version 1)
Quarter: 2024Q3

REPORT INFORMATION
  Report Type: Spontaneous
  Country: US (occurrence: None)
  Receive Date: 20240805
  Receipt Date: 20240805
  Transmission Date: 20241017
  Serious: Yes (Life-Threatening, Disabling)
  Sender: Public
  Company Number: None

PATIENT
  Age: 82 Year
  Sex: Male
  Weight: 70.31 kg

DRUGS (8)
  1. INGREZZA [Suspect]
     Active Substance: VALBENAZINE
     Indication: Product used for unknown indication
     Dosage: 1 ONCE DAILY DAILY MOUTH ??BEST ESTIMATE OF DURATION:?3 DOSNGES THIRD DOSE I GOT SICK
     Dates: start: 20230818, end: 20230821
  2. AMLODIPINE [Concomitant]
     Active Substance: AMLODIPINE BESYLATE
  3. TAMSULIN 0.4 MG [Concomitant]
  4. OMEPRAZOLE [Concomitant]
     Active Substance: OMEPRAZOLE
  5. QUETIAPINE [Concomitant]
     Active Substance: QUETIAPINE
  6. EXCEDRIN [Concomitant]
     Active Substance: ACETAMINOPHEN\ASPIRIN\CAFFEINE
  7. ADVIL [Concomitant]
     Active Substance: IBUPROFEN\IBUPROFEN SODIUM
  8. ACETAMINOPHEN [Concomitant]
     Active Substance: ACETAMINOPHEN

REACTIONS (7)
  - Pain in extremity [None]
  - Pain in extremity [None]
  - Musculoskeletal stiffness [None]
  - Nerve injury [None]
  - Headache [None]
  - Chest pain [None]
  - Muscle twitching [None]

NARRATIVE: CASE EVENT DATE: 20230821
